FAERS Safety Report 18183629 (Version 1)
Quarter: 2020Q3

REPORT INFORMATION
  Report Type: Spontaneous
  Country: IT (occurrence: IT)
  Receive Date: 20200822
  Receipt Date: 20200822
  Transmission Date: 20201103
  Serious: Yes (Other)
  Sender: FDA-Public Use
  Company Number: NVSC2020IT229670

PATIENT
  Age: 28 Year
  Sex: Male

DRUGS (2)
  1. IBUPROFEN. [Suspect]
     Active Substance: IBUPROFEN
     Indication: TOOTHACHE
     Dosage: 6000 MG, TOTAL
     Route: 048
     Dates: start: 20200809, end: 20200810
  2. AMOXICILINA + ACIDO CLAVULONICO [Concomitant]
     Active Substance: AMOXICILLIN\CLAVULANATE POTASSIUM
     Indication: TOOTHACHE
     Dosage: 2 G
     Route: 048

REACTIONS (2)
  - Renal impairment [Unknown]
  - Drug abuse [Unknown]

NARRATIVE: CASE EVENT DATE: 20200811
